FAERS Safety Report 7678022-7 (Version None)
Quarter: 2011Q3

REPORT INFORMATION
  Report Type: 
  Country: None (occurrence: None)
  Receive Date: 20110811
  Receipt Date: 20110804
  Transmission Date: 20111222
  Serious: No
  Sender: FDA-Public Use
  Company Number: CN-GLAXOSMITHKLINE-B0731755A

PATIENT

DRUGS (1)
  1. FLIXONASE [Suspect]
     Indication: RHINITIS
     Route: 063
     Dates: start: 20110616, end: 20110701

REACTIONS (1)
  - EXPOSURE DURING BREAST FEEDING [None]
